FAERS Safety Report 8584512-5 (Version None)
Quarter: 2012Q3

REPORT INFORMATION
  Report Type: 
  Country: None (occurrence: None)
  Receive Date: 20120730
  Receipt Date: 20120718
  Transmission Date: 20120928
  Serious: Yes (Other)
  Sender: FDA-Public Use
  Company Number: HA12-209-AE

PATIENT
  Age: 66 Year
  Sex: Female
  Weight: 72.5755 kg

DRUGS (1)
  1. GABAPENTIN [Suspect]
     Indication: HERPES ZOSTER
     Dosage: 900 MG BID, ORAL
     Route: 048
     Dates: start: 20080101

REACTIONS (2)
  - HEART RATE IRREGULAR [None]
  - STENT PLACEMENT [None]
